FAERS Safety Report 5225857-6 (Version None)
Quarter: 2007Q1

REPORT INFORMATION
  Report Type: 
  Country: None (occurrence: None)
  Receive Date: 20070130
  Receipt Date: 20070130
  Transmission Date: 20070707
  Serious: No
  Sender: FDA-Public Use
  Company Number: None

PATIENT
  Sex: Female
  Weight: 68 kg

DRUGS (7)
  1. CARBOPLATIN [Suspect]
     Dosage: 383 MG
  2. TAXOL [Suspect]
     Dosage: 294 MG
  3. COMPAZINE [Concomitant]
  4. DECADRON [Concomitant]
  5. PERCOCET [Concomitant]
  6. ZANTAC [Concomitant]
  7. OXYCONTIN [Concomitant]

REACTIONS (1)
  - NEUTROPHIL COUNT DECREASED [None]
